FAERS Safety Report 12401059 (Version 2)
Quarter: 2016Q2

REPORT INFORMATION
  Report Type: Spontaneous
  Country: US (occurrence: US)
  Receive Date: 20160525
  Receipt Date: 20160525
  Transmission Date: 20160815
  Serious: No
  Sender: FDA-Public Use
  Company Number: US-SA-2015SA145621

PATIENT
  Age: 72 Year
  Sex: Female

DRUGS (8)
  1. LANTUS SOLOSTAR [Suspect]
     Active Substance: INSULIN GLARGINE
     Indication: TYPE 2 DIABETES MELLITUS
     Dosage: DOSE:12 UNIT(S)
     Route: 065
     Dates: start: 2014, end: 201509
  2. LANTUS SOLOSTAR [Suspect]
     Active Substance: INSULIN GLARGINE
     Indication: LIVER DISORDER
     Dosage: DOSE:12 UNIT(S)
     Route: 065
     Dates: start: 2014, end: 201509
  3. LANTUS SOLOSTAR [Suspect]
     Active Substance: INSULIN GLARGINE
     Indication: LIVER DISORDER
     Dosage: DOSE:12 UNIT(S)
     Route: 065
  4. LANTUS SOLOSTAR [Suspect]
     Active Substance: INSULIN GLARGINE
     Indication: TYPE 2 DIABETES MELLITUS
     Dosage: DOSE:12 UNIT(S)
     Route: 065
  5. LANTUS SOLOSTAR [Suspect]
     Active Substance: INSULIN GLARGINE
     Indication: LIVER DISORDER
     Dosage: DOSE:12 UNIT(S)
     Route: 065
     Dates: start: 2014, end: 201509
  6. NOVOLOG [Concomitant]
     Active Substance: INSULIN ASPART
  7. SOLOSTAR [Concomitant]
     Active Substance: DEVICE
     Indication: LIVER DISORDER
     Dates: start: 2014, end: 201509
  8. LANTUS SOLOSTAR [Suspect]
     Active Substance: INSULIN GLARGINE
     Indication: TYPE 2 DIABETES MELLITUS
     Dosage: DOSE:12 UNIT(S)
     Route: 065
     Dates: start: 2014, end: 201509

REACTIONS (8)
  - Movement disorder [Unknown]
  - Off label use [Unknown]
  - Abdominal distension [Recovered/Resolved]
  - Urine output decreased [Unknown]
  - Feeling abnormal [Recovering/Resolving]
  - Weight increased [Unknown]
  - Swelling [Unknown]
  - Chest discomfort [Recovered/Resolved]

NARRATIVE: CASE EVENT DATE: 20150917
